FAERS Safety Report 7937426 (Version 3)
Quarter: 2014Q2

REPORT INFORMATION
  Report Type: Spontaneous
  Country: US (occurrence: US)
  Receive Date: 20110509
  Receipt Date: 20140523
  Transmission Date: 20141212
  Serious: Yes (Hospitalization)
  Sender: FDA-Public Use
  Company Number: US-MYLANLABS-2011S1008682

PATIENT
  Age: 69 Year
  Sex: Male

DRUGS (1)
  1. IPRATROPIUM BROMIDE INHALATION SOLUTION [Suspect]
     Indication: RESPIRATORY DISTRESS
     Dosage: NEBULISED IPRATROPIUM EVERY 4 HOURS
     Route: 065

REACTIONS (2)
  - Mydriasis [Recovered/Resolved]
  - Pupils unequal [Recovered/Resolved]
